FAERS Safety Report 19486095 (Version 2)
Quarter: 2021Q3

REPORT INFORMATION
  Report Type: Spontaneous
  Country: US (occurrence: US)
  Receive Date: 20210702
  Receipt Date: 20210915
  Transmission Date: 20211014
  Serious: Yes (Other)
  Sender: FDA-Public Use
  Company Number: US-AUROBINDO-AUR-APL-2021-028568

PATIENT

DRUGS (1)
  1. LIQUID MELATONIN TINCTURE [Suspect]
     Active Substance: MELATONIN
     Indication: INSOMNIA
     Dosage: UNK
     Route: 065

REACTIONS (4)
  - Vomiting [Unknown]
  - Loss of consciousness [Unknown]
  - Product use complaint [Unknown]
  - Illness [Unknown]
